FAERS Safety Report 17544065 (Version 1)
Quarter: 2020Q1

REPORT INFORMATION
  Report Type: Spontaneous
  Country: DE (occurrence: DE)
  Receive Date: 20200316
  Receipt Date: 20200316
  Transmission Date: 20200409
  Serious: Yes (Hospitalization)
  Sender: FDA-Public Use
  Company Number: DE-TEVA-2020-DE-1203983

PATIENT
  Age: 5 Year
  Sex: Female
  Weight: 15 kg

DRUGS (3)
  1. COTRIM K 240MG/5ML [Suspect]
     Active Substance: SULFAMETHOXAZOLE\TRIMETHOPRIM
     Indication: URINARY TRACT INFECTION
     Dosage: 10 ML DAILY; DAILY DOSE: 10 ML MILLILITRE(S) EVERY DAYS 2 SEPARATED DOSES
     Route: 048
  2. CEFUROX [CEFUROXIME] [Suspect]
     Active Substance: CEFUROXIME
     Indication: PYREXIA
     Dosage: DAILY DOSE: 10 ML MILLILITRE(S) EVERY DAYS 2 SEPARATED DOSES
     Route: 048
  3. IBUFLAM 40MG/ML [Concomitant]
     Indication: PYREXIA
     Dosage: DAILY DOSE: 40 ML MILLILITRE(S) EVERY DAYS
     Route: 048

REACTIONS (4)
  - Hyponatraemia [Recovered/Resolved]
  - Pyrexia [Recovered/Resolved]
  - Anaemia [Recovered/Resolved]
  - Dysuria [Recovered/Resolved]
